FAERS Safety Report 13005448 (Version 1)
Quarter: 2016Q4

REPORT INFORMATION
  Report Type: Spontaneous
  Country: FR (occurrence: FR)
  Receive Date: 20161207
  Receipt Date: 20161207
  Transmission Date: 20170207
  Serious: Yes (Hospitalization)
  Sender: FDA-Public Use
  Company Number: FR-ELI_LILLY_AND_COMPANY-FR201611009124

PATIENT
  Age: 70 Year
  Sex: Male

DRUGS (7)
  1. ALIMTA [Suspect]
     Active Substance: PEMETREXED DISODIUM
     Indication: NON-SMALL CELL LUNG CANCER
     Dosage: 1000 MG, CYCLICAL
     Route: 042
     Dates: start: 20151207, end: 201610
  2. ALIMTA [Suspect]
     Active Substance: PEMETREXED DISODIUM
     Dosage: 435 MG, CYCLICAL
     Route: 042
     Dates: start: 20161006
  3. VITAMIN B12 [Concomitant]
     Active Substance: CYANOCOBALAMIN
     Dosage: UNK, UNKNOWN
     Route: 065
  4. ALIMTA [Suspect]
     Active Substance: PEMETREXED DISODIUM
     Dosage: 731 MG, CYCLICAL
     Route: 042
     Dates: start: 20160915
  5. CISPLATINE [Concomitant]
     Active Substance: CISPLATIN
     Dosage: UNK UNK, UNKNOWN
     Route: 065
     Dates: start: 20151207
  6. FOLIC ACID. [Concomitant]
     Active Substance: FOLIC ACID
     Dosage: UNK, UNKNOWN
     Route: 065
  7. CORTANCYL [Concomitant]
     Active Substance: PREDNISONE
     Dosage: UNK, UNKNOWN
     Route: 065

REACTIONS (9)
  - Vomiting [Recovered/Resolved]
  - Dehydration [Unknown]
  - Fatigue [Unknown]
  - Hypokalaemia [Recovered/Resolved]
  - Diarrhoea [Recovered/Resolved]
  - Abdominal pain [Recovered/Resolved]
  - Inflammation [Unknown]
  - Nausea [Recovered/Resolved]
  - Hyponatraemia [Recovered/Resolved]

NARRATIVE: CASE EVENT DATE: 20160621
